FAERS Safety Report 19223672 (Version 2)
Quarter: 2021Q2

REPORT INFORMATION
  Report Type: Report from Study
  Country: US (occurrence: US)
  Receive Date: 20210505
  Receipt Date: 20210518
  Transmission Date: 20210717
  Serious: Yes (Congenital Anomaly)
  Sender: FDA-Public Use
  Company Number: US-JAZZ-2021-US-007382

PATIENT
  Age: 4 Month
  Sex: Male
  Weight: 5.81 kg

DRUGS (2)
  1. SOLRIAMFETOL (UNSPECIFIED) [Suspect]
     Active Substance: SOLRIAMFETOL
     Indication: FOETAL EXPOSURE DURING PREGNANCY
     Route: 064
  2. XYREM [Suspect]
     Active Substance: SODIUM OXYBATE
     Indication: FOETAL EXPOSURE DURING PREGNANCY
     Route: 064

REACTIONS (1)
  - Pectus excavatum [Not Recovered/Not Resolved]

NARRATIVE: CASE EVENT DATE: 20210406
